FAERS Safety Report 24984635 (Version 1)
Quarter: 2025Q1

REPORT INFORMATION
  Report Type: Spontaneous
  Country: US (occurrence: US)
  Receive Date: 20250219
  Receipt Date: 20250219
  Transmission Date: 20250409
  Serious: No
  Sender: CIPLA
  Company Number: US-CIPLA LTD.-2024US05816

PATIENT

DRUGS (3)
  1. ALBUTEROL\IPRATROPIUM [Suspect]
     Active Substance: ALBUTEROL\IPRATROPIUM
     Indication: Chronic obstructive pulmonary disease
     Dosage: UNK, QID (EVERY 6 HOURS), STRENGTH: 0.5-3MG/3ML (SINCE 5 YEARS)
     Dates: start: 2019
  2. ALBUTEROL\IPRATROPIUM [Suspect]
     Active Substance: ALBUTEROL\IPRATROPIUM
     Dosage: UNK, QID (EVERY 6 HOURS), STRENGTH: 0.5-3MG/3ML
     Dates: start: 2022
  3. PROAIR HFA [Concomitant]
     Active Substance: ALBUTEROL SULFATE
     Indication: Chronic obstructive pulmonary disease
     Route: 065
     Dates: start: 202102

REACTIONS (3)
  - Drug ineffective [Not Recovered/Not Resolved]
  - Recalled product administered [Not Recovered/Not Resolved]
  - Product quality issue [Unknown]

NARRATIVE: CASE EVENT DATE: 20240101
